FAERS Safety Report 21669000 (Version 2)
Quarter: 2022Q4

REPORT INFORMATION
  Report Type: Spontaneous
  Country: CN (occurrence: CN)
  Receive Date: 20221201
  Receipt Date: 20221208
  Transmission Date: 20230112
  Serious: Yes (Other)
  Sender: FDA-Public Use
  Company Number: CN-ORGANON-O2211CHN002173

PATIENT
  Age: 51 Year
  Sex: Female
  Weight: 51.3 kg

DRUGS (6)
  1. REMERON [Suspect]
     Active Substance: MIRTAZAPINE
     Indication: Depression
     Dosage: 15MG, QD
     Route: 048
     Dates: start: 20221108, end: 20221108
  2. REMERON [Suspect]
     Active Substance: MIRTAZAPINE
     Indication: Anxiety
     Dosage: 7.5 MG QN PO
     Route: 048
  3. ESCITALOPRAM OXALATE [Suspect]
     Active Substance: ESCITALOPRAM OXALATE
     Indication: Anxiety
     Dosage: 5MG, QD
     Route: 048
     Dates: start: 20221108, end: 20221110
  4. ESCITALOPRAM OXALATE [Suspect]
     Active Substance: ESCITALOPRAM OXALATE
     Indication: Depression
  5. FOSAMAX PLUS 70MG+2800IU [Concomitant]
     Indication: Osteoporosis
     Dosage: 1 TABLET, QW
     Route: 048
     Dates: start: 20221107, end: 20221107
  6. ALFACALCIDOL [Concomitant]
     Active Substance: ALFACALCIDOL
     Indication: Osteoporosis
     Dosage: 0.5UG, QD
     Route: 048
     Dates: start: 20221105, end: 20221110

REACTIONS (4)
  - Asthenia [Recovering/Resolving]
  - Dizziness [Recovering/Resolving]
  - Headache [Recovering/Resolving]
  - Sinus bradycardia [Recovering/Resolving]

NARRATIVE: CASE EVENT DATE: 20221109
